FAERS Safety Report 22587720 (Version 5)
Quarter: 2023Q4

REPORT INFORMATION
  Report Type: Spontaneous
  Country: PT (occurrence: PT)
  Receive Date: 20230612
  Receipt Date: 20231211
  Transmission Date: 20240110
  Serious: Yes (Other)
  Sender: FDA-Public Use
  Company Number: PT-AUROBINDO-AUR-APL-2023-041487

PATIENT
  Age: 95 Year
  Sex: Male

DRUGS (1)
  1. AMOXICILLIN\CLAVULANIC ACID [Suspect]
     Active Substance: AMOXICILLIN\CLAVULANIC ACID
     Indication: Pneumonia aspiration
     Dosage: 3 TIMES A DAY
     Route: 042

REACTIONS (5)
  - Fixed eruption [Recovered/Resolved]
  - Type IV hypersensitivity reaction [Recovered/Resolved]
  - Rash macular [Unknown]
  - Skin hyperpigmentation [Unknown]
  - Erythema [Unknown]
